FAERS Safety Report 23803044 (Version 2)
Quarter: 2024Q2

REPORT INFORMATION
  Report Type: Report from Study
  Country: US (occurrence: US)
  Receive Date: 20240501
  Receipt Date: 20240620
  Transmission Date: 20240716
  Serious: Yes (Hospitalization)
  Sender: FDA-Public Use
  Company Number: US-INSMED, INC.-2024-00807-US

PATIENT
  Sex: Female

DRUGS (3)
  1. ARIKAYCE [Suspect]
     Active Substance: AMIKACIN
     Indication: Mycobacterial infection
     Dosage: 590 MILLIGRAM, QD
     Route: 055
     Dates: start: 2024
  2. IMIPENEM [Concomitant]
     Active Substance: IMIPENEM
     Indication: Product used for unknown indication
     Dosage: UNK, UNK
     Route: 065
     Dates: start: 2024
  3. TIGECYCLINE [Concomitant]
     Active Substance: TIGECYCLINE
     Indication: Product used for unknown indication
     Dosage: UNK, UNK
     Route: 065
     Dates: start: 2024

REACTIONS (11)
  - Hospitalisation [Unknown]
  - Arthritis [Unknown]
  - Sinusitis [Unknown]
  - Nasal congestion [Unknown]
  - Infusion [Unknown]
  - Oropharyngeal pain [Unknown]
  - Asthenia [Unknown]
  - Balance disorder [Unknown]
  - Nausea [Unknown]
  - Product packaging difficult to open [Unknown]
  - Product package associated injury [Unknown]

NARRATIVE: CASE EVENT DATE: 20240101
